FAERS Safety Report 9641152 (Version 2)
Quarter: 2013Q4

REPORT INFORMATION
  Report Type: Spontaneous
  Country: US (occurrence: US)
  Receive Date: 20131023
  Receipt Date: 20131023
  Transmission Date: 20140711
  Serious: Yes (Other)
  Sender: FDA-Public Use
  Company Number: US-ELI_LILLY_AND_COMPANY-US201309007861

PATIENT
  Sex: Male

DRUGS (4)
  1. ZYPREXA [Suspect]
     Indication: DEPRESSION
     Dosage: 5 MG, QD
     Route: 048
     Dates: start: 2003
  2. ZYPREXA [Suspect]
     Indication: ANXIETY
     Dosage: 2.5 MG, QD
  3. CYMBALTA [Concomitant]
     Indication: DEPRESSION
     Dosage: 1 DF, UNKNOWN
  4. VYTORIN [Concomitant]

REACTIONS (9)
  - Blood creatine phosphokinase increased [Not Recovered/Not Resolved]
  - Metabolic syndrome [Not Recovered/Not Resolved]
  - Type 2 diabetes mellitus [Not Recovered/Not Resolved]
  - Malaise [Unknown]
  - Depressed mood [Unknown]
  - Myalgia [Unknown]
  - Drug withdrawal syndrome [Unknown]
  - Asthenia [Unknown]
  - Off label use [Not Recovered/Not Resolved]
